FAERS Safety Report 6821863-6 (Version None)
Quarter: 2010Q3

REPORT INFORMATION
  Report Type: 
  Country: None (occurrence: None)
  Receive Date: 20100708
  Receipt Date: 20100628
  Transmission Date: 20110219
  Serious: No
  Sender: FDA-Public Use
  Company Number: US-BIOGENIDEC-2010BI018174

PATIENT
  Age: 48 Year
  Sex: Female

DRUGS (2)
  1. TYSABRI [Suspect]
     Indication: MULTIPLE SCLEROSIS
     Route: 042
     Dates: start: 20100415
  2. INSULIN [NOS] [Concomitant]

REACTIONS (4)
  - BLOOD GLUCOSE DECREASED [None]
  - EAR PAIN [None]
  - FATIGUE [None]
  - OROPHARYNGEAL PAIN [None]
